FAERS Safety Report 6097193-X (Version None)
Quarter: 2009Q1

REPORT INFORMATION
  Report Type: 
  Country: None (occurrence: None)
  Receive Date: 20090227
  Receipt Date: 20090223
  Transmission Date: 20090719
  Serious: Yes (Life-Threatening, Hospitalization)
  Sender: FDA-Public Use
  Company Number: B0502451A

PATIENT
  Age: 64 Year
  Sex: Male
  Weight: 58 kg

DRUGS (23)
  1. ALKERAN [Suspect]
     Indication: STEM CELL TRANSPLANT
     Dosage: 100MG PER DAY
     Route: 042
     Dates: start: 20071216, end: 20071218
  2. MEROPEN [Suspect]
     Indication: ALTERED STATE OF CONSCIOUSNESS
     Route: 042
     Dates: start: 20071222, end: 20071231
  3. ACYCLOVIR [Suspect]
     Indication: ALTERED STATE OF CONSCIOUSNESS
     Route: 042
     Dates: start: 20071222, end: 20071231
  4. ALEVIATIN [Suspect]
     Indication: ALTERED STATE OF CONSCIOUSNESS
     Route: 042
     Dates: start: 20071223, end: 20071231
  5. THIOTEPA [Concomitant]
     Indication: STEM CELL TRANSPLANT
     Dates: start: 20071213, end: 20071214
  6. DECADRON [Concomitant]
     Indication: STEM CELL TRANSPLANT
     Dates: start: 20071213, end: 20071231
  7. GRAN [Concomitant]
     Dates: start: 20071225, end: 20071231
  8. HEPARIN [Concomitant]
     Dates: start: 20071213, end: 20071223
  9. SOLU-MEDROL [Concomitant]
     Route: 042
     Dates: start: 20071220, end: 20071230
  10. HAPTOGLOBIN [Concomitant]
     Route: 042
     Dates: start: 20071220, end: 20071220
  11. GASTER [Concomitant]
     Route: 042
     Dates: start: 20071220, end: 20071220
  12. FUROSEMIDE [Concomitant]
     Route: 042
     Dates: start: 20071217, end: 20071221
  13. MAXIPIME [Concomitant]
     Route: 042
     Dates: start: 20071221, end: 20071222
  14. OMEPRAL [Concomitant]
     Route: 042
     Dates: start: 20071221, end: 20071231
  15. SERENACE [Concomitant]
     Dates: start: 20071222, end: 20071223
  16. ZYLORIC [Concomitant]
     Route: 048
     Dates: start: 20060615, end: 20071219
  17. URSO 250 [Concomitant]
     Route: 048
     Dates: start: 20070313, end: 20071219
  18. TAKEPRON [Concomitant]
     Route: 048
     Dates: start: 20070123, end: 20071219
  19. BIOFERMIN R [Concomitant]
     Route: 048
     Dates: start: 20070710, end: 20071219
  20. CRAVIT [Concomitant]
     Route: 048
     Dates: start: 20071213, end: 20071219
  21. DIFLUCAN [Concomitant]
     Route: 048
     Dates: start: 20071213, end: 20071219
  22. EPADEL S [Concomitant]
     Route: 048
     Dates: start: 20071213, end: 20071219
  23. BLEOMYCIN [Concomitant]

REACTIONS (10)
  - ABNORMAL BEHAVIOUR [None]
  - ALTERED STATE OF CONSCIOUSNESS [None]
  - BLOOD BILIRUBIN INCREASED [None]
  - BLOOD CREATININE INCREASED [None]
  - BLOOD UREA INCREASED [None]
  - DYSKINESIA [None]
  - ENCEPHALITIS VIRAL [None]
  - HYPERNATRAEMIA [None]
  - METASTASES TO CENTRAL NERVOUS SYSTEM [None]
  - RENAL IMPAIRMENT [None]
